FAERS Safety Report 9267413 (Version 1)
Quarter: 2013Q2

REPORT INFORMATION
  Report Type: Spontaneous
  Country: US (occurrence: US)
  Receive Date: 20130502
  Receipt Date: 20130502
  Transmission Date: 20140414
  Serious: Yes (Hospitalization)
  Sender: FDA-Public Use
  Company Number: US-BAYER-2013-053141

PATIENT
  Age: 34 Year
  Sex: Female
  Weight: 117.91 kg

DRUGS (4)
  1. YAZ [Suspect]
     Indication: CONTRACEPTION
     Dosage: UNK
     Dates: start: 20120724, end: 20120802
  2. BEYAZ [Suspect]
     Dosage: UNK
  3. GIANVI [Suspect]
     Dosage: UNK
  4. METFORMIN [Concomitant]
     Indication: POLYCYSTIC OVARIES
     Dosage: UNK

REACTIONS (3)
  - Pulmonary embolism [Recovering/Resolving]
  - Deep vein thrombosis [None]
  - Dyspnoea [Recovering/Resolving]
